FAERS Safety Report 5551545-2 (Version None)
Quarter: 2007Q4

REPORT INFORMATION
  Report Type: 
  Country: None (occurrence: None)
  Receive Date: 20071212
  Receipt Date: 20071203
  Transmission Date: 20080405
  Serious: Yes (Hospitalization, Other)
  Sender: FDA-Public Use
  Company Number: US-PFIZER INC-2007014822

PATIENT
  Sex: Male

DRUGS (3)
  1. CELEBREX [Suspect]
     Indication: MUSCULOSKELETAL PAIN
  2. BEXTRA [Suspect]
     Indication: JOINT SPRAIN
     Route: 048
     Dates: start: 20050227
  3. BEXTRA [Suspect]
     Indication: PAIN MANAGEMENT

REACTIONS (4)
  - BLOOD PRESSURE INCREASED [None]
  - CARDIOVASCULAR DISORDER [None]
  - CEREBROVASCULAR ACCIDENT [None]
  - MYOCARDIAL INFARCTION [None]
